FAERS Safety Report 9578800 (Version 1)
Quarter: 2013Q4

REPORT INFORMATION
  Report Type: Spontaneous
  Country: US (occurrence: US)
  Receive Date: 20131001
  Receipt Date: 20131001
  Transmission Date: 20140711
  Serious: No
  Sender: FDA-Public Use
  Company Number: US-AMGEN-USASP2013014461

PATIENT
  Sex: Female
  Weight: 65.76 kg

DRUGS (5)
  1. ENBREL [Suspect]
     Indication: RHEUMATOID ARTHRITIS
     Dosage: 50 MG, QWK
     Route: 058
  2. GLUCOSAMINE [Concomitant]
     Dosage: 500 MG, UNK
  3. CALCIUM [Concomitant]
     Dosage: 500 UNK, UNK
  4. OMEGA 3                            /01334101/ [Concomitant]
     Dosage: 340 MG, UNK
  5. TOPROL [Concomitant]
     Dosage: 25 MG, UNK

REACTIONS (1)
  - Therapeutic response decreased [Unknown]
